FAERS Safety Report 14282006 (Version 1)
Quarter: 2017Q4

REPORT INFORMATION
  Report Type: Report from Study
  Country: TR (occurrence: TR)
  Receive Date: 20171213
  Receipt Date: 20171213
  Transmission Date: 20180321
  Serious: Yes (Hospitalization, Other)
  Sender: FDA-Public Use
  Company Number: TR-ALEXION-A201713969

PATIENT
  Sex: Male
  Weight: 9 kg

DRUGS (2)
  1. ASFOTASE ALFA [Suspect]
     Active Substance: ASFOTASE ALFA
     Indication: HYPOPHOSPHATASIA
     Dosage: 2 MG/KG, TIW
     Route: 058
  2. ASFOTASE ALFA [Suspect]
     Active Substance: ASFOTASE ALFA
     Dosage: 3 MG/KG, TIW
     Route: 058

REACTIONS (2)
  - Drug ineffective [Unknown]
  - Incorrect dose administered [Unknown]
